FAERS Safety Report 11102335 (Version 2)
Quarter: 2015Q2

REPORT INFORMATION
  Report Type: Spontaneous
  Country: US (occurrence: None)
  Receive Date: 20150507
  Receipt Date: 20150520
  Transmission Date: 20150821
  Serious: Yes (Other)
  Sender: FDA-Public Use
  Company Number: US-H14001-15-00566

PATIENT
  Age: 41 Year
  Sex: Female

DRUGS (1)
  1. PROGESTERONE. [Suspect]
     Active Substance: PROGESTERONE
     Indication: IN VITRO FERTILISATION
     Dosage: 2 ML (1 ML, 2 IN 1 D), INTRAMUSCULAR
     Route: 030
     Dates: start: 20150325, end: 20150411

REACTIONS (6)
  - Myalgia [None]
  - Injection site mass [None]
  - Abortion spontaneous [None]
  - Injection site pruritus [None]
  - Exposure during pregnancy [None]
  - Injection site urticaria [None]

NARRATIVE: CASE EVENT DATE: 2015
